FAERS Safety Report 20007351 (Version 2)
Quarter: 2021Q4

REPORT INFORMATION
  Report Type: Spontaneous
  Country: US (occurrence: US)
  Receive Date: 20211028
  Receipt Date: 20211122
  Transmission Date: 20220303
  Serious: Yes (Life-Threatening, Hospitalization, Other)
  Sender: FDA-Public Use
  Company Number: US-DRREDDYS-SPO/USA/21/0142956

PATIENT
  Age: 56 Year
  Sex: Male

DRUGS (1)
  1. SIMVASTATIN [Suspect]
     Active Substance: SIMVASTATIN
     Indication: Product used for unknown indication

REACTIONS (4)
  - Acute respiratory failure [Recovering/Resolving]
  - Pneumonia aspiration [Recovering/Resolving]
  - Immune-mediated myositis [Recovering/Resolving]
  - Renal impairment [Recovering/Resolving]
